FAERS Safety Report 7430458-5 (Version None)
Quarter: 2011Q2

REPORT INFORMATION
  Report Type: 
  Country: None (occurrence: None)
  Receive Date: 20110421
  Receipt Date: 20101108
  Transmission Date: 20111010
  Serious: No
  Sender: FDA-Public Use
  Company Number: US-ASTRAZENECA-2010SE53819

PATIENT
  Sex: Female

DRUGS (2)
  1. NOVOLOG [Suspect]
  2. TOPROL-XL [Suspect]
     Route: 048

REACTIONS (5)
  - BRAIN INJURY [None]
  - READING DISORDER [None]
  - AMNESIA [None]
  - HYPOGLYCAEMIA [None]
  - TRANSIENT ISCHAEMIC ATTACK [None]
